FAERS Safety Report 6023043-3 (Version None)
Quarter: 2008Q4

REPORT INFORMATION
  Report Type: 
  Country: None (occurrence: None)
  Receive Date: 20081230
  Receipt Date: 20060324
  Transmission Date: 20090506
  Serious: No
  Sender: FDA-Public Use
  Company Number: US-ABBOTT-08P-163-0462450-00

PATIENT

DRUGS (1)
  1. OMNICEF [Suspect]
     Indication: EAR INFECTION

REACTIONS (1)
  - PHARYNGITIS STREPTOCOCCAL [None]
